FAERS Safety Report 12079106 (Version 1)
Quarter: 2016Q1

REPORT INFORMATION
  Report Type: Spontaneous
  Country: DK (occurrence: DK)
  Receive Date: 20160216
  Receipt Date: 20160216
  Transmission Date: 20160526
  Serious: Yes (Other)
  Sender: FDA-Public Use
  Company Number: DK-ASTELLAS-2016US005042

PATIENT
  Age: 38 Year
  Sex: Female

DRUGS (2)
  1. BENYLAN                            /00008401/ [Concomitant]
     Indication: COUGH
     Dosage: UNK UNK, UNKNOWN FREQ.
     Route: 048
  2. PROTOPIC [Suspect]
     Active Substance: TACROLIMUS
     Indication: DERMATITIS ATOPIC
     Dosage: UNK, TWICE DAILY
     Route: 061
     Dates: start: 20160206, end: 20160209

REACTIONS (4)
  - Application site oedema [Not Recovered/Not Resolved]
  - Application site exfoliation [Not Recovered/Not Resolved]
  - Application site erythema [Not Recovered/Not Resolved]
  - Application site pain [Not Recovered/Not Resolved]

NARRATIVE: CASE EVENT DATE: 20160209
